FAERS Safety Report 12114633 (Version 3)
Quarter: 2016Q2

REPORT INFORMATION
  Report Type: Spontaneous
  Country: CA (occurrence: CA)
  Receive Date: 20160225
  Receipt Date: 20160413
  Transmission Date: 20160815
  Serious: Yes (Hospitalization)
  Sender: FDA-Public Use
  Company Number: CA-PFIZER INC-2016108159

PATIENT
  Sex: Female

DRUGS (1)
  1. ADVIL COLD AND SINUS PLUS [Suspect]
     Active Substance: CHLORPHENIRAMINE MALEATE\IBUPROFEN\PSEUDOEPHEDRINE HYDROCHLORIDE
     Dosage: 1 DF, UNK

REACTIONS (8)
  - Heart rate increased [Recovered/Resolved]
  - Blood pressure increased [Unknown]
  - Headache [Unknown]
  - Product quality issue [Unknown]
  - Chest pain [Unknown]
  - Dry mouth [Unknown]
  - Dissociation [Unknown]
  - Diarrhoea [Unknown]
